FAERS Safety Report 8128119-2 (Version None)
Quarter: 2012Q1

REPORT INFORMATION
  Report Type: 
  Country: None (occurrence: None)
  Receive Date: 20120210
  Receipt Date: 20120201
  Transmission Date: 20120608
  Serious: Yes (Hospitalization, Other)
  Sender: FDA-Public Use
  Company Number: JP-NOVOPROD-289050

PATIENT
  Age: 73 Year
  Sex: Male
  Weight: 69 kg

DRUGS (12)
  1. NOVORAPID 30 MIX CHU PENFILL [Suspect]
     Indication: TYPE 2 DIABETES MELLITUS
     Dosage: 22 IU, QD
     Route: 058
     Dates: start: 20090629, end: 20090703
  2. WARFARIN SODIUM [Concomitant]
     Indication: ATRIAL FIBRILLATION
     Dosage: 4.5 MG, UNK
     Route: 048
  3. LANTUS [Concomitant]
     Indication: TYPE 2 DIABETES MELLITUS
     Dosage: 12 U, QD
     Route: 058
     Dates: start: 20090703, end: 20091101
  4. NOVOLIN R [Concomitant]
     Dosage: 12U
     Dates: start: 20090704
  5. LASIX [Concomitant]
     Indication: CARDIAC FAILURE CHRONIC
     Dosage: 40 MG, UNK
     Route: 048
  6. KALIMATE                           /00328101/ [Concomitant]
     Indication: RENAL FAILURE
     Dosage: 10 G, UNK
     Route: 048
  7. NOVORAPID 30 MIX CHU PENFILL [Suspect]
     Dosage: 10+6+10 U, QD
     Dates: start: 20090702, end: 20090702
  8. HUMULIN R                         /00646001/ [Concomitant]
     Dosage: 51 U/HOUR, UNK
     Route: 042
     Dates: start: 20090703, end: 20090704
  9. ENALAPRIL MALEATE [Concomitant]
     Indication: HYPERTENSION
     Dosage: 5 MG, UNK
     Route: 048
  10. LANSOPRAZOLE [Concomitant]
     Indication: GASTROOESOPHAGEAL REFLUX DISEASE
     Dosage: 30 MG, UNK
     Route: 048
  11. NOVORAPID CHU PENFILL [Suspect]
     Indication: TYPE 2 DIABETES MELLITUS
     Dosage: 36 IU, QD
     Route: 058
     Dates: start: 20090703, end: 20090704
  12. VASOLAN                            /00014302/ [Concomitant]
     Indication: ATRIAL FIBRILLATION
     Dosage: 120 MG, UNK
     Route: 048

REACTIONS (5)
  - INJECTION SITE INDURATION [None]
  - INJECTION SITE PRURITUS [None]
  - DRUG HYPERSENSITIVITY [None]
  - INJECTION SITE ERYTHEMA [None]
  - HYPERGLYCAEMIA [None]
